FAERS Safety Report 21693823 (Version 1)
Quarter: 2022Q4

REPORT INFORMATION
  Report Type: Spontaneous
  Country: AU (occurrence: AU)
  Receive Date: 20221207
  Receipt Date: 20221207
  Transmission Date: 20230112
  Serious: Yes (Hospitalization, Other)
  Sender: FDA-Public Use
  Company Number: None

PATIENT

DRUGS (1)
  1. NUCYNTA ER [Suspect]
     Active Substance: TAPENTADOL HYDROCHLORIDE
     Indication: Pain
     Dosage: UNK, UNKNOWN
     Route: 065

REACTIONS (4)
  - Thrombosis [Recovered/Resolved]
  - Heart rate increased [Recovered/Resolved]
  - Vomiting [Recovered/Resolved]
  - Off label use [Unknown]
